FAERS Safety Report 8451117-6 (Version None)
Quarter: 2012Q2

REPORT INFORMATION
  Report Type: 
  Country: None (occurrence: None)
  Receive Date: 20120613
  Receipt Date: 20120530
  Transmission Date: 20120825
  Serious: Yes (Other)
  Sender: FDA-Public Use
  Company Number: GB-1192496

PATIENT
  Age: 81 Year
  Sex: Female

DRUGS (11)
  1. TRAVATAN [Suspect]
     Dosage: OPHTHALMIC
     Route: 047
  2. ASPIRIN [Concomitant]
  3. XALATAN [Concomitant]
  4. COSOPT [Concomitant]
  5. STATIN [Concomitant]
  6. LUMIGAN [Concomitant]
  7. MAXIDEX [Suspect]
     Dosage: (6 TIMES DAILY OPHTHALMIC), (QDS FOR ONE WEEK OPHTHALMIC)
     Route: 047
  8. ALPHAGAN [Concomitant]
  9. LOTEMAX [Concomitant]
  10. RAMIPRIL [Concomitant]
  11. DOXAZOSIN MESYLATE [Concomitant]

REACTIONS (10)
  - CORNEAL THICKENING [None]
  - PHOTOPHOBIA [None]
  - INTRAOCULAR PRESSURE INCREASED [None]
  - UVEITIS [None]
  - CORNEAL DEPOSITS [None]
  - CONJUNCTIVAL SCAR [None]
  - IRITIS [None]
  - CONDITION AGGRAVATED [None]
  - DRUG HYPERSENSITIVITY [None]
  - VISION BLURRED [None]
